FAERS Safety Report 6137836-5 (Version None)
Quarter: 2009Q1

REPORT INFORMATION
  Report Type: 
  Country: None (occurrence: None)
  Receive Date: 20090331
  Receipt Date: 20090323
  Transmission Date: 20090719
  Serious: Yes (Other)
  Sender: FDA-Public Use
  Company Number: GB-BAXTER-2009BH003667

PATIENT
  Age: 69 Year
  Sex: Female
  Weight: 87 kg

DRUGS (7)
  1. CYCLOPHOSPHAMIDE [Suspect]
     Indication: MULTIPLE MYELOMA
     Route: 048
  2. DEXAMETHASONE [Suspect]
     Indication: MULTIPLE MYELOMA
     Route: 048
  3. DEXAMETHASONE SODIUM PHOSPHATE [Suspect]
     Indication: MULTIPLE MYELOMA
     Route: 048
  4. FENTANYL-25 [Suspect]
     Indication: DRUG USE FOR UNKNOWN INDICATION
     Route: 065
  5. ORAMORPH SR [Suspect]
     Indication: DRUG USE FOR UNKNOWN INDICATION
     Route: 065
  6. VELCADE [Suspect]
     Indication: MULTIPLE MYELOMA
     Route: 040
  7. LEVOTHYROXINE SODIUM [Concomitant]

REACTIONS (2)
  - DRUG WITHDRAWAL SYNDROME [None]
  - RASH [None]
